FAERS Safety Report 14222440 (Version 2)
Quarter: 2018Q1

REPORT INFORMATION
  Report Type: Report from Study
  Country: DE (occurrence: DE)
  Receive Date: 20171124
  Receipt Date: 20180301
  Transmission Date: 20180508
  Serious: Yes (Hospitalization)
  Sender: FDA-Public Use
  Company Number: DE-ROCHE-2024893

PATIENT
  Age: 77 Year
  Sex: Male
  Weight: 85 kg

DRUGS (3)
  1. METAMIZOL [Concomitant]
     Active Substance: METAMIZOLE SODIUM
     Indication: COLECTOMY
     Route: 065
     Dates: start: 20170918
  2. OBINUTUZUMAB. [Suspect]
     Active Substance: OBINUTUZUMAB
     Indication: B-CELL LYMPHOMA
     Dosage: DATE OF MOST RECENT DOSE OF OBINUTUZUMAB PRIOR TO  SERIOUS ADVERSE EVENT 13/AUG/2015 WITH THE DOSE C
     Route: 042
     Dates: start: 20130515
  3. BENDAMUSTINE [Suspect]
     Active Substance: BENDAMUSTINE
     Indication: B-CELL LYMPHOMA
     Dosage: DATE OF MOST RECENT DOSE OF BENDAMUSTINE PRIOR TO SERIOUS ADVERSE EVENT 02/OCT/2013 WITH THE DOSE 17
     Route: 042
     Dates: start: 20130516

REACTIONS (1)
  - Adenocarcinoma of colon [Not Recovered/Not Resolved]

NARRATIVE: CASE EVENT DATE: 20170830
